FAERS Safety Report 10569018 (Version 1)
Quarter: 2014Q4

REPORT INFORMATION
  Report Type: Spontaneous
  Country: US (occurrence: US)
  Receive Date: 20141106
  Receipt Date: 20141106
  Transmission Date: 20150529
  Serious: Yes (Other)
  Sender: FDA-Public Use
  Company Number: US-TEVA-519469USA

PATIENT
  Sex: Female

DRUGS (1)
  1. PHENOXYMETHYLPENICILLIN [Suspect]
     Active Substance: PENICILLIN V
     Indication: STREPTOCOCCAL INFECTION
     Dosage: DOSE AND FREQUENCY NOT PROVIDED
     Dates: start: 201410, end: 201410

REACTIONS (3)
  - Coeliac disease [Recovered/Resolved]
  - Arthralgia [Recovered/Resolved]
  - Abdominal pain upper [Recovered/Resolved]
